FAERS Safety Report 7243312-9 (Version None)
Quarter: 2011Q1

REPORT INFORMATION
  Report Type: 
  Country: None (occurrence: None)
  Receive Date: 20110125
  Receipt Date: 20110117
  Transmission Date: 20110831
  Serious: Yes (Death)
  Sender: FDA-Public Use
  Company Number: US-GENZYME-CLOF-1001409

PATIENT

DRUGS (7)
  1. MELPHALAN [Suspect]
     Indication: STEM CELL TRANSPLANT
     Dosage: 100 MG/M2 ON DAY -4
     Route: 042
  2. CLOLAR [Suspect]
     Indication: STEM CELL TRANSPLANT
     Dosage: 40 MG/M2, QDX5 ON DAYS -9 THROUGH -5
     Route: 042
  3. MELPHALAN [Suspect]
     Indication: ACUTE LEUKAEMIA
  4. TACROLIMUS [Suspect]
     Indication: PROPHYLAXIS AGAINST GRAFT VERSUS HOST DISEASE
     Dosage: 0.02 MG/KG/DAY STARTING ON DAY -3
     Route: 042
  5. SIROLIMUS [Suspect]
     Indication: PROPHYLAXIS AGAINST GRAFT VERSUS HOST DISEASE
     Dosage: 12 MG LOADING DOSE ON DAY -3
     Route: 048
  6. CLOLAR [Suspect]
     Indication: ACUTE LEUKAEMIA
  7. SIROLIMUS [Suspect]
     Dosage: 4 MG SINGLE MORNING DAILY DOSE
     Route: 048

REACTIONS (1)
  - THROMBOTIC MICROANGIOPATHY [None]
